FAERS Safety Report 25060714 (Version 3)
Quarter: 2025Q4

REPORT INFORMATION
  Report Type: Spontaneous
  Country: KW (occurrence: KW)
  Receive Date: 20250310
  Receipt Date: 20251231
  Transmission Date: 20260117
  Serious: Yes (Other)
  Sender: PFIZER
  Company Number: KW-PFIZER INC-PV202500027212

PATIENT
  Age: 17 Year
  Sex: Male

DRUGS (6)
  1. LORLATINIB [Suspect]
     Active Substance: LORLATINIB
     Indication: Lung neoplasm malignant
     Dosage: 100 MG, 1X/DAY
     Route: 048
     Dates: start: 202407
  2. LORLATINIB [Suspect]
     Active Substance: LORLATINIB
     Dosage: 75 MG, 1X/DAY
     Route: 048
     Dates: start: 202411
  3. LORLATINIB [Suspect]
     Active Substance: LORLATINIB
     Dosage: 50 MG, 1X/DAY
     Route: 048
  4. ROSUVASTATIN [Suspect]
     Active Substance: ROSUVASTATIN
     Dosage: 10 MG 1X/DAY
     Dates: start: 202409
  5. DENOSUMAB [Concomitant]
     Active Substance: DENOSUMAB
     Dosage: 120 MG, EVERY 4 WEEKS
  6. DENOSUMAB [Concomitant]
     Active Substance: DENOSUMAB
     Dosage: UNK, MONTHLY

REACTIONS (2)
  - Hallucination, auditory [Recovered/Resolved]
  - Hyperlipidaemia [Recovering/Resolving]

NARRATIVE: CASE EVENT DATE: 20240901
